FAERS Safety Report 8055410 (Version 2)
Quarter: 2012Q4

REPORT INFORMATION
  Report Type: 
  Country: US (occurrence: US)
  Receive Date: 20110726
  Receipt Date: 20121112
  Transmission Date: 20130627
  Serious: Yes (Hospitalization)
  Sender: FDA-Public Use
  Company Number: US-US-EMD SERONO, INC.-7072689

PATIENT
  Sex: Female
  Weight: 69 kg

DRUGS (4)
  1. REBIF [Suspect]
     Route: 065
  2. PRENATAL VITAMINS [Concomitant]
     Indication: PRODUCT USED FOR UNKNOWN INDICATION
  3. METFORMIN [Concomitant]
     Indication: PRODUCT USED FOR UNKNOWN INDICATION
  4. LEVOXYL [Concomitant]
     Indication: PRODUCT USED FOR UNKNOWN INDICATION

REACTIONS (2)
  - Premature rupture of membranes [Recovered/Resolved]
  - Exposure via father [Recovered/Resolved]
